FAERS Safety Report 19469076 (Version 3)
Quarter: 2021Q3

REPORT INFORMATION
  Report Type: Report from Study
  Country: BR (occurrence: BR)
  Receive Date: 20210628
  Receipt Date: 20210927
  Transmission Date: 20211014
  Serious: Yes (Other)
  Sender: FDA-Public Use
  Company Number: NVSC2021BR138297

PATIENT
  Age: 66 Year
  Sex: Female

DRUGS (9)
  1. PIQRAY [Suspect]
     Active Substance: ALPELISIB
     Dosage: 300 MG, QD
     Route: 048
     Dates: start: 20210601
  2. ANASTROZOLE. [Concomitant]
     Active Substance: ANASTROZOLE
     Indication: PRODUCT USED FOR UNKNOWN INDICATION
     Dosage: UNK
     Route: 065
     Dates: start: 201503
  3. AVASTIN [Concomitant]
     Active Substance: BEVACIZUMAB
     Indication: PRODUCT USED FOR UNKNOWN INDICATION
     Dosage: UNK
     Route: 065
     Dates: start: 201503
  4. FASLODEX [Concomitant]
     Active Substance: FULVESTRANT
     Indication: PRODUCT USED FOR UNKNOWN INDICATION
     Dosage: 500 NG, QMO
     Route: 030
     Dates: start: 20210602
  5. FASLODEX [Concomitant]
     Active Substance: FULVESTRANT
     Dosage: UNK
     Route: 030
     Dates: start: 20210630
  6. GENUXAL [Concomitant]
     Active Substance: CYCLOPHOSPHAMIDE
     Indication: PRODUCT USED FOR UNKNOWN INDICATION
     Dosage: UNK
     Route: 065
  7. FASLODEX [Concomitant]
     Active Substance: FULVESTRANT
     Dosage: UNK
     Route: 030
     Dates: start: 20210616
  8. PIQRAY [Suspect]
     Active Substance: ALPELISIB
     Indication: BREAST CANCER METASTATIC
     Dosage: UNK
     Route: 065
     Dates: start: 202103
  9. AFINITOR [Suspect]
     Active Substance: EVEROLIMUS
     Indication: BREAST CANCER METASTATIC
     Dosage: UNK
     Route: 065

REACTIONS (29)
  - Injury [Not Recovered/Not Resolved]
  - Eye irritation [Not Recovered/Not Resolved]
  - Feeling abnormal [Unknown]
  - Joint lock [Unknown]
  - Pharyngitis [Recovered/Resolved]
  - Insomnia [Unknown]
  - Oral mucosal erythema [Not Recovered/Not Resolved]
  - Eye disorder [Not Recovered/Not Resolved]
  - Visual impairment [Not Recovered/Not Resolved]
  - Eating disorder [Recovered/Resolved]
  - Oropharyngeal pain [Not Recovered/Not Resolved]
  - Breast cancer metastatic [Unknown]
  - Mouth swelling [Unknown]
  - Aphthous ulcer [Recovered/Resolved]
  - Malignant neoplasm progression [Unknown]
  - Tonsillitis [Unknown]
  - Odynophagia [Unknown]
  - Tension [Unknown]
  - Eye pruritus [Not Recovered/Not Resolved]
  - Stomatitis [Not Recovered/Not Resolved]
  - Muscle spasms [Not Recovered/Not Resolved]
  - Restlessness [Unknown]
  - Neutropenia [Not Recovered/Not Resolved]
  - Nervous system disorder [Unknown]
  - Speech disorder [Recovered/Resolved]
  - Impatience [Unknown]
  - Gingival pain [Not Recovered/Not Resolved]
  - Lacrimation increased [Not Recovered/Not Resolved]
  - Emotional disorder [Unknown]

NARRATIVE: CASE EVENT DATE: 202103
